FAERS Safety Report 24096243 (Version 1)
Quarter: 2024Q3

REPORT INFORMATION
  Report Type: Spontaneous
  Country: IT (occurrence: IT)
  Receive Date: 20240716
  Receipt Date: 20240716
  Transmission Date: 20241016
  Serious: Yes (Other)
  Sender: RANBAXY
  Company Number: IT-SUN PHARMACEUTICAL INDUSTRIES LTD-2024RR-456653

PATIENT
  Age: 47 Year
  Sex: Female

DRUGS (2)
  1. IMATINIB [Suspect]
     Active Substance: IMATINIB
     Indication: Chronic myeloid leukaemia
     Dosage: 4 TABLETS OF 100MG PER DAY IN A SINGLE ADMINISTRATION (LUNCH)
     Route: 048
     Dates: start: 2009, end: 20240329
  2. LASIX [Concomitant]
     Active Substance: FUROSEMIDE
     Indication: Fluid retention
     Dosage: 25 MILLIGRAM, UNK
     Route: 048
     Dates: start: 2009, end: 202402

REACTIONS (1)
  - Oral pigmentation [Not Recovered/Not Resolved]

NARRATIVE: CASE EVENT DATE: 20230101
